FAERS Safety Report 9402468 (Version 1)
Quarter: 2013Q3

REPORT INFORMATION
  Report Type: Spontaneous
  Country: GB (occurrence: GB)
  Receive Date: 20130716
  Receipt Date: 20130716
  Transmission Date: 20140515
  Serious: Yes (Other)
  Sender: FDA-Public Use
  Company Number: GB-NOVOPROD-376553

PATIENT
  Age: 46 Year
  Sex: Male

DRUGS (2)
  1. NOVORAPID [Suspect]
     Indication: TYPE 2 DIABETES MELLITUS
     Dosage: 4 IU, TID
     Route: 058
     Dates: start: 201211, end: 20130621
  2. LANTUS [Suspect]
     Indication: TYPE 2 DIABETES MELLITUS
     Dosage: 5 IU, QD
     Route: 058
     Dates: start: 201211, end: 20130621

REACTIONS (2)
  - Convulsion [Unknown]
  - Hypoglycaemia [Unknown]
